FAERS Safety Report 6784091-9 (Version None)
Quarter: 2010Q2

REPORT INFORMATION
  Report Type: 
  Country: None (occurrence: None)
  Receive Date: 20100622
  Receipt Date: 20100611
  Transmission Date: 20101027
  Serious: Yes (Other)
  Sender: FDA-Public Use
  Company Number: US-JNJFOC-20100604402

PATIENT
  Sex: Female
  Weight: 63.5 kg

DRUGS (3)
  1. REMICADE [Suspect]
     Indication: CROHN'S DISEASE
     Route: 042
  2. REMICADE [Suspect]
     Route: 042
  3. PREDNISONE [Concomitant]
     Indication: CROHN'S DISEASE

REACTIONS (8)
  - ABSCESS [None]
  - ANAEMIA [None]
  - CROHN'S DISEASE [None]
  - DRUG INEFFECTIVE [None]
  - IMMUNODEFICIENCY [None]
  - INTESTINAL RESECTION [None]
  - JOINT SWELLING [None]
  - PAIN IN EXTREMITY [None]
